FAERS Safety Report 12461815 (Version 2)
Quarter: 2017Q4

REPORT INFORMATION
  Report Type: Spontaneous
  Country: FR (occurrence: FR)
  Receive Date: 20160613
  Receipt Date: 20171219
  Transmission Date: 20180320
  Serious: Yes (Hospitalization, Other)
  Sender: FDA-Public Use
  Company Number: FR-OTSUKA-2016_012544

PATIENT
  Age: 44 Year
  Sex: Female

DRUGS (6)
  1. TERCIAN [Suspect]
     Active Substance: CYAMEMAZINE
     Indication: PSYCHOTIC DISORDER
     Dosage: 60 MG, QD
     Route: 048
     Dates: start: 20160330
  2. ABILIFY MAINTENA [Suspect]
     Active Substance: ARIPIPRAZOLE
     Indication: PSYCHOTIC DISORDER
     Dosage: 400 MG, SINGLE
     Route: 030
     Dates: start: 20160416, end: 20160416
  3. ABILIFY MAINTENA [Suspect]
     Active Substance: ARIPIPRAZOLE
     Indication: PSYCHOTIC DISORDER
     Dosage: 400 MG, ONE TIME DOSE
     Route: 030
     Dates: start: 20160416, end: 20160416
  4. ABILIFY [Suspect]
     Active Substance: ARIPIPRAZOLE
     Indication: PSYCHOTIC DISORDER
     Dosage: 15 MG, BID
     Route: 048
     Dates: start: 20160331, end: 20160418
  5. PRAZEPAM [Suspect]
     Active Substance: PRAZEPAM
     Indication: ANXIETY
     Dosage: 30 MG, TID
     Route: 048
     Dates: start: 20160330
  6. ZOPICLONE [Suspect]
     Active Substance: ZOPICLONE
     Indication: INSOMNIA
     Dosage: 7.5 MG, QD
     Route: 048
     Dates: start: 20160330

REACTIONS (6)
  - Hyperhidrosis [Unknown]
  - Tremor [Unknown]
  - Hypotension [Unknown]
  - Erythema multiforme [Recovered/Resolved]
  - Off label use [Unknown]
  - Inflammation [Unknown]

NARRATIVE: CASE EVENT DATE: 20160416
